FAERS Safety Report 10511796 (Version 1)
Quarter: 2014Q4

REPORT INFORMATION
  Report Type: Spontaneous
  Country: US (occurrence: US)
  Receive Date: 20141010
  Receipt Date: 20141010
  Transmission Date: 20150528
  Serious: Yes (Other)
  Sender: FDA-Public Use
  Company Number: US-ASTRAZENECA-2014SE74538

PATIENT
  Age: 45 Year
  Sex: Male

DRUGS (1)
  1. SYMBICORT [Suspect]
     Active Substance: BUDESONIDE\FORMOTEROL FUMARATE DIHYDRATE
     Indication: CHRONIC OBSTRUCTIVE PULMONARY DISEASE
     Dosage: 160/4.5, 2 PUFFS, 320 UG, TWO TIMES A DAY
     Route: 055

REACTIONS (4)
  - Head and neck cancer [Unknown]
  - Wheezing [Unknown]
  - Chest discomfort [Unknown]
  - Pulmonary function test abnormal [Not Recovered/Not Resolved]
